FAERS Safety Report 20301836 (Version 7)
Quarter: 2022Q2

REPORT INFORMATION
  Report Type: Spontaneous
  Country: CA (occurrence: CA)
  Receive Date: 20220105
  Receipt Date: 20220505
  Transmission Date: 20220721
  Serious: Yes (Other)
  Sender: FDA-Public Use
  Company Number: CA-CELLTRION INC.-2021CA004641

PATIENT

DRUGS (2)
  1. INFLECTRA [Suspect]
     Active Substance: INFLIXIMAB-DYYB
     Indication: Crohn^s disease
     Dosage: 300 MG, EVERY 8 WEEKS
     Route: 041
     Dates: start: 20210304
  2. INFLECTRA [Suspect]
     Active Substance: INFLIXIMAB-DYYB
     Dosage: 300 MG, EVERY 8 WEEKS
     Route: 041
     Dates: start: 20220217

REACTIONS (17)
  - Acute febrile neutrophilic dermatosis [Unknown]
  - Macule [Not Recovered/Not Resolved]
  - Viral infection [Unknown]
  - Rash [Unknown]
  - Mouth ulceration [Unknown]
  - Infection [Unknown]
  - Skin irritation [Not Recovered/Not Resolved]
  - Skin lesion [Unknown]
  - Condition aggravated [Unknown]
  - Rash [Unknown]
  - Pruritus [Unknown]
  - Pain [Unknown]
  - Blister [Unknown]
  - Inflammation [Unknown]
  - COVID-19 [Not Recovered/Not Resolved]
  - Sinusitis [Unknown]
  - Nasal congestion [Unknown]

NARRATIVE: CASE EVENT DATE: 20210101
